FAERS Safety Report 12278566 (Version 1)
Quarter: 2016Q2

REPORT INFORMATION
  Report Type: Spontaneous
  Country: US (occurrence: US)
  Receive Date: 20160418
  Receipt Date: 20160418
  Transmission Date: 20160815
  Serious: Yes (Hospitalization, Other)
  Sender: FDA-Public Use
  Company Number: US-MDT-ADR-2015-02393

PATIENT
  Age: 57 Year
  Sex: Female

DRUGS (8)
  1. COMPOUNDED BACLOFEN [Suspect]
     Active Substance: BACLOFEN
     Dosage: 936MCG/DAY
     Route: 037
     Dates: start: 20150427, end: 20150924
  2. COMPOUNDED BACLOFEN [Suspect]
     Active Substance: BACLOFEN
     Dosage: 838.3MCG/DAY
     Route: 037
     Dates: start: 20141121, end: 20141219
  3. COMPOUNDED BACLOFEN [Suspect]
     Active Substance: BACLOFEN
     Dosage: 381.1MCG/DAY
     Route: 037
     Dates: start: 20150924, end: 20151104
  4. TIZANIDINE. [Suspect]
     Active Substance: TIZANIDINE
     Dosage: AS NEEDED
     Route: 048
  5. COMPOUNDED BACLOFEN [Suspect]
     Active Substance: BACLOFEN
     Dosage: 817MCG/DAY
     Route: 037
     Dates: start: 20141219, end: 20150209
  6. COMPOUNDED BACLOFEN [Suspect]
     Active Substance: BACLOFEN
     Dosage: 936MCG/DAY
     Route: 037
     Dates: start: 20150209, end: 20150427
  7. BACLOFEN. [Suspect]
     Active Substance: BACLOFEN
     Dosage: AS NEEDED
     Route: 048
  8. COMPOUNDED BACLOFEN [Suspect]
     Active Substance: BACLOFEN
     Dosage: 519MCG/DAY
     Route: 037
     Dates: start: 20151104

REACTIONS (9)
  - Muscle spasticity [Unknown]
  - Medical device discomfort [Unknown]
  - Sleep disorder [Unknown]
  - Weight decreased [Unknown]
  - Urinary tract infection [Unknown]
  - Drug withdrawal syndrome [Unknown]
  - Medical device site pain [Unknown]
  - Muscle spasms [Unknown]
  - Underdose [Unknown]

NARRATIVE: CASE EVENT DATE: 2015
